FAERS Safety Report 7045730-0 (Version None)
Quarter: 2010Q4

REPORT INFORMATION
  Report Type: 
  Country: None (occurrence: None)
  Receive Date: 20101014
  Receipt Date: 20101008
  Transmission Date: 20110411
  Serious: Yes (Other)
  Sender: FDA-Public Use
  Company Number: JP-MERCK-1010USA01182

PATIENT
  Age: 59 Year
  Sex: Male

DRUGS (7)
  1. STROMECTOL [Suspect]
     Indication: ACARODERMATITIS
     Dosage: DIVIDED DOSE FREQUENCY IS UNKNOWN
     Route: 048
     Dates: start: 20100910, end: 20100910
  2. STROMECTOL [Suspect]
     Dosage: DIVIDED DOSE FREQUENCY IS UNKNOWN
     Route: 048
     Dates: start: 20100917, end: 20100917
  3. REMERON [Concomitant]
     Indication: DEPRESSION
     Route: 048
     Dates: end: 20101005
  4. RONFLEMAN [Concomitant]
     Indication: DEPRESSION
     Route: 048
  5. FLUNITRAZEPAM [Concomitant]
     Indication: DEPRESSION
     Route: 048
  6. SENNOSIDES [Concomitant]
     Route: 048
  7. EURAX [Concomitant]
     Indication: ACARODERMATITIS
     Route: 061
     Dates: start: 20100910, end: 20101004

REACTIONS (1)
  - HAEMATURIA [None]
